FAERS Safety Report 5898847-8 (Version None)
Quarter: 2008Q3

REPORT INFORMATION
  Report Type: 
  Country: None (occurrence: None)
  Receive Date: 20080925
  Receipt Date: 20080728
  Transmission Date: 20090109
  Serious: No
  Sender: FDA-Public Use
  Company Number: A0739775A

PATIENT
  Age: 63 Year
  Sex: Male

DRUGS (13)
  1. WELLBUTRIN XL [Suspect]
     Indication: DEPRESSION
     Dosage: 150MG THREE TIMES PER DAY
     Route: 048
     Dates: start: 20071001
  2. LEXAPRO [Concomitant]
  3. TRAZODONE HCL [Concomitant]
  4. AMBIEN CR [Concomitant]
  5. CYMBALTA [Concomitant]
  6. ALPRAZOLAM [Concomitant]
  7. TRICOR [Concomitant]
  8. TESTOSTERONE INJECTION [Concomitant]
  9. BACTRIM DS [Concomitant]
  10. NORVIR [Concomitant]
  11. RANITIDINE [Concomitant]
  12. LEXIVA [Concomitant]
  13. TRUVADA [Concomitant]

REACTIONS (2)
  - DRUG ADMINISTRATION ERROR [None]
  - FEELING ABNORMAL [None]
